FAERS Safety Report 9320553 (Version 1)
Quarter: 2013Q2

REPORT INFORMATION
  Report Type: Spontaneous
  Country: GB (occurrence: GB)
  Receive Date: 20130531
  Receipt Date: 20130531
  Transmission Date: 20140414
  Serious: Yes (Other)
  Sender: FDA-Public Use
  Company Number: GB-ROCHE-1230529

PATIENT
  Age: 23 Year
  Sex: Female

DRUGS (7)
  1. NAPROSYN [Suspect]
     Indication: TOOTH IMPACTED
     Route: 048
     Dates: start: 20130514, end: 20130518
  2. MEFENAMIC ACID [Suspect]
     Indication: IRRITABLE BOWEL SYNDROME
     Route: 048
     Dates: start: 20130514, end: 20130518
  3. BACLOFEN [Concomitant]
     Route: 065
  4. CO-CODAMOL [Concomitant]
  5. DOMPERIDONE [Concomitant]
     Route: 065
  6. LACTULOSE [Concomitant]
  7. ZOPICLONE [Concomitant]
     Route: 065

REACTIONS (2)
  - Abdominal pain [Recovered/Resolved]
  - Functional gastrointestinal disorder [Recovered/Resolved]
